FAERS Safety Report 7376791-7 (Version None)
Quarter: 2011Q1

REPORT INFORMATION
  Report Type: 
  Country: None (occurrence: None)
  Receive Date: 20110325
  Receipt Date: 20110322
  Transmission Date: 20110831
  Serious: Yes (Other)
  Sender: FDA-Public Use
  Company Number: AU-ASTRAZENECA-2011SE16287

PATIENT
  Age: 33 Year
  Sex: Female

DRUGS (3)
  1. FENTANYL [Suspect]
  2. PROPOFOL [Suspect]
     Route: 042
  3. ROCURONIUM BROMIDE [Suspect]

REACTIONS (10)
  - LIVEDO RETICULARIS [None]
  - ANAPHYLACTIC REACTION [None]
  - GENERAL PHYSICAL HEALTH DETERIORATION [None]
  - SINUS TACHYCARDIA [None]
  - AIRWAY PEAK PRESSURE INCREASED [None]
  - POOR PERIPHERAL CIRCULATION [None]
  - COUGH [None]
  - SKIN TEST POSITIVE [None]
  - CARDIAC OUTPUT DECREASED [None]
  - PULSE PRESSURE DECREASED [None]
